FAERS Safety Report 16804324 (Version 5)
Quarter: 2020Q1

REPORT INFORMATION
  Report Type: Spontaneous
  Country: US (occurrence: US)
  Receive Date: 20190913
  Receipt Date: 20200106
  Transmission Date: 20200409
  Serious: Yes (Disabling, Other)
  Sender: FDA-Public Use
  Company Number: US-PFIZER INC-2019239189

PATIENT
  Age: 66 Year
  Sex: Female
  Weight: 78.47 kg

DRUGS (3)
  1. IBRANCE [Suspect]
     Active Substance: PALBOCICLIB
     Dosage: 125 MG, CYCLIC (ONCE A DAY BY MOUTH, 3 WEEKS ON, ONE WEEK OFF)
     Route: 048
     Dates: start: 2017
  2. IBRANCE [Suspect]
     Active Substance: PALBOCICLIB
     Dosage: 125 MG, 1X/DAY
     Route: 048
     Dates: start: 2017
  3. IBRANCE [Suspect]
     Active Substance: PALBOCICLIB
     Indication: BREAST CANCER METASTATIC
     Dosage: 125 MG, CYCLIC (EVERY NIGHT BY MOUTH FOR 21 DAYS THEN OFF MEDICATION FOR 7 DAYS)
     Route: 048

REACTIONS (14)
  - Oral pain [Not Recovered/Not Resolved]
  - Gingivitis [Unknown]
  - Mouth ulceration [Not Recovered/Not Resolved]
  - Neoplasm progression [Unknown]
  - Gastrointestinal disorder [Unknown]
  - Condition aggravated [Unknown]
  - Weight decreased [Unknown]
  - Dental caries [Not Recovered/Not Resolved]
  - Malaise [Unknown]
  - Dyspnoea [Unknown]
  - Tooth discolouration [Not Recovered/Not Resolved]
  - Amnesia [Unknown]
  - Mastication disorder [Not Recovered/Not Resolved]
  - Product dose omission [Unknown]

NARRATIVE: CASE EVENT DATE: 2017
